FAERS Safety Report 17656216 (Version 1)
Quarter: 2020Q2

REPORT INFORMATION
  Report Type: Spontaneous
  Country: US (occurrence: US)
  Receive Date: 20200410
  Receipt Date: 20200410
  Transmission Date: 20200713
  Serious: No
  Sender: FDA-Public Use
  Company Number: US-PERRIGO-19US007744

PATIENT
  Sex: Male
  Weight: 74.83 kg

DRUGS (2)
  1. ACETAMINOPHEN. [Suspect]
     Active Substance: ACETAMINOPHEN
     Dosage: 650 MG, BID
     Route: 048
     Dates: start: 2019, end: 20190621
  2. ACETAMINOPHEN. [Suspect]
     Active Substance: ACETAMINOPHEN
     Indication: ARTHRALGIA
     Dosage: 1300 MG, BID
     Route: 048
     Dates: start: 201903, end: 2019

REACTIONS (4)
  - Incorrect product administration duration [Recovered/Resolved]
  - Peptic ulcer [Recovered/Resolved]
  - Faeces discoloured [Recovered/Resolved]
  - Underdose [Recovered/Resolved]

NARRATIVE: CASE EVENT DATE: 2019
